APPROVED DRUG PRODUCT: AZOR
Active Ingredient: AMLODIPINE BESYLATE; OLMESARTAN MEDOXOMIL
Strength: EQ 10MG BASE;20MG
Dosage Form/Route: TABLET;ORAL
Application: N022100 | Product #003 | TE Code: AB
Applicant: COSETTE PHARMACEUTICALS INC
Approved: Sep 26, 2007 | RLD: Yes | RS: No | Type: RX